FAERS Safety Report 21176306 (Version 4)
Quarter: 2022Q3

REPORT INFORMATION
  Report Type: Spontaneous
  Country: JP (occurrence: JP)
  Receive Date: 20220805
  Receipt Date: 20220905
  Transmission Date: 20221026
  Serious: Yes (Other)
  Sender: FDA-Public Use
  Company Number: JP-ASTELLAS-2022JP008974

PATIENT
  Age: 7 Decade
  Sex: Male

DRUGS (6)
  1. XOSPATA [Suspect]
     Active Substance: GILTERITINIB
     Indication: Acute myeloid leukaemia recurrent
     Route: 048
  2. XOSPATA [Suspect]
     Active Substance: GILTERITINIB
     Indication: Acute myeloid leukaemia refractory
     Route: 048
     Dates: start: 20220704
  3. TRAMADOL [Concomitant]
     Active Substance: TRAMADOL
     Indication: Pain in extremity
     Route: 065
  4. TRAMADOL [Concomitant]
     Active Substance: TRAMADOL
     Route: 065
     Dates: start: 20220711
  5. LEVOFLOXACIN [Concomitant]
     Active Substance: LEVOFLOXACIN
     Indication: Product used for unknown indication
     Dosage: UNK UNK, UNKNOWN FREQ.
     Route: 065
     Dates: start: 20220704, end: 20220725
  6. POLAPREZINC [Concomitant]
     Active Substance: POLAPREZINC
     Indication: Taste disorder
     Dosage: UNK UNK, UNKNOWN FREQ.
     Route: 065
     Dates: start: 20220711

REACTIONS (5)
  - Pancytopenia [Recovering/Resolving]
  - Dysgeusia [Not Recovered/Not Resolved]
  - Pain in extremity [Recovering/Resolving]
  - C-reactive protein increased [Recovered/Resolved]
  - Acute myeloid leukaemia [Unknown]

NARRATIVE: CASE EVENT DATE: 20220613
